FAERS Safety Report 9937179 (Version 2)
Quarter: 2014Q1

REPORT INFORMATION
  Report Type: Spontaneous
  Country: US (occurrence: US)
  Receive Date: 20140301
  Receipt Date: 20140301
  Transmission Date: 20141002
  Serious: Yes (Other)
  Sender: FDA-Public Use
  Company Number: US-GE HEALTHCARE MEDICAL DIAGNOSTICS-OSCN-PR-1102S-0086

PATIENT
  Age: 42 Year
  Sex: Male

DRUGS (5)
  1. OMNISCAN [Suspect]
     Indication: BACK PAIN
     Route: 042
     Dates: start: 20040503, end: 20040503
  2. OMNISCAN [Suspect]
     Route: 042
     Dates: start: 20040617, end: 20040617
  3. OMNISCAN [Suspect]
     Route: 042
     Dates: start: 20040730, end: 20040730
  4. PROHANCE [Suspect]
     Indication: BACK PAIN
     Dates: start: 20040218, end: 20040218
  5. PROHANCE [Suspect]
     Indication: OSTEOMYELITIS
     Dates: start: 20040325, end: 20040325

REACTIONS (1)
  - Nephrogenic systemic fibrosis [Not Recovered/Not Resolved]
